FAERS Safety Report 21467952 (Version 1)
Quarter: 2022Q4

REPORT INFORMATION
  Report Type: Spontaneous
  Country: US (occurrence: US)
  Receive Date: 20221017
  Receipt Date: 20221017
  Transmission Date: 20230112
  Serious: No
  Sender: FDA-Public Use
  Company Number: US-ALLERGAN-2227693US

PATIENT
  Age: 74 Year
  Sex: Male
  Weight: 95.254 kg

DRUGS (10)
  1. LINZESS [Suspect]
     Active Substance: LINACLOTIDE
     Indication: Irritable bowel syndrome
     Dosage: ACTUAL:1 DF, QOD, EMPTY STOMACH
     Route: 048
     Dates: start: 202207
  2. PFIZER-BIONTECH COVID-19 VACCINE [Concomitant]
     Active Substance: TOZINAMERAN
     Indication: COVID-19 immunisation
     Dosage: UNK UNK, SINGLE, BOOSTER
     Route: 030
     Dates: start: 202205, end: 202205
  3. MIRALAX [Concomitant]
     Active Substance: POLYETHYLENE GLYCOL 3350
  4. TRESIBA [Concomitant]
     Active Substance: INSULIN DEGLUDEC
  5. ELIQUIS [Concomitant]
     Active Substance: APIXABAN
  6. LATANOPROST [Concomitant]
     Active Substance: LATANOPROST
     Indication: Eye disorder
  7. TIMOLOL [Concomitant]
     Active Substance: TIMOLOL
  8. HYOSCYAMINE [Concomitant]
     Active Substance: HYOSCYAMINE
  9. SERTRALINE [Concomitant]
     Active Substance: SERTRALINE HYDROCHLORIDE
     Indication: Anxiety
  10. PANTOPRAZOLE SODIUM [Concomitant]
     Active Substance: PANTOPRAZOLE SODIUM
     Indication: Gastrointestinal disorder

REACTIONS (3)
  - Diarrhoea [Recovering/Resolving]
  - Anal incontinence [Unknown]
  - Defaecation urgency [Unknown]

NARRATIVE: CASE EVENT DATE: 20220821
